FAERS Safety Report 8477799-0 (Version None)
Quarter: 2012Q2

REPORT INFORMATION
  Report Type: 
  Country: None (occurrence: None)
  Receive Date: 20120629
  Receipt Date: 20120621
  Transmission Date: 20120825
  Serious: Yes (Hospitalization)
  Sender: FDA-Public Use
  Company Number: US-BAYER-2012-002892

PATIENT
  Age: 28 Year
  Sex: Female
  Weight: 90.703 kg

DRUGS (10)
  1. FLUOCINONIDE [Concomitant]
     Dosage: 0.05 %, UNK
     Route: 061
     Dates: start: 20071016
  2. PROCHLORPERAZINE [Concomitant]
     Dosage: 10 MG, UNK
     Route: 048
     Dates: start: 20071221
  3. ATENOLOL [Concomitant]
     Dosage: 50 MG, UNK
     Route: 048
     Dates: start: 20071221
  4. COMPAZINE [Concomitant]
  5. HYDROCHLOROTHIAZIDE [Concomitant]
     Dosage: 12.5 MG, UNK
     Route: 048
     Dates: start: 20071221
  6. EFFEXOR XR [Concomitant]
     Dosage: 75 MG, UNK
     Route: 048
     Dates: start: 20071221
  7. YAZ [Suspect]
     Indication: ACNE
     Dosage: UNK
     Route: 048
     Dates: start: 20070901, end: 20090501
  8. YAZ [Suspect]
     Indication: PREMENSTRUAL SYNDROME
  9. VITAMIN TAB [Concomitant]
  10. ALBUTEROL [Concomitant]
     Dosage: UNK
     Dates: start: 19990101

REACTIONS (7)
  - CHOLECYSTITIS CHRONIC [None]
  - INJURY [None]
  - WEIGHT INCREASED [None]
  - CHOLELITHIASIS [None]
  - PAIN [None]
  - OBSESSIVE-COMPULSIVE DISORDER [None]
  - DEPRESSION [None]
